FAERS Safety Report 6432975-3 (Version None)
Quarter: 2009Q4

REPORT INFORMATION
  Report Type: 
  Country: None (occurrence: None)
  Receive Date: 20091109
  Receipt Date: 20091026
  Transmission Date: 20100525
  Serious: Yes (Other)
  Sender: FDA-Public Use
  Company Number: US-ELI_LILLY_AND_COMPANY-US200910006492

PATIENT
  Age: 55 Year
  Sex: Female

DRUGS (4)
  1. EFFIENT [Suspect]
     Dosage: 10 MG, DAILY (1/D)
     Dates: start: 20091014, end: 20091023
  2. ASPIRIN [Concomitant]
     Dosage: 81 MG, UNK
  3. CRESTOR [Concomitant]
  4. LISINOPRIL [Concomitant]

REACTIONS (3)
  - BLOOD PRESSURE INCREASED [None]
  - CATHETERISATION CARDIAC [None]
  - RETROPERITONEAL HAEMORRHAGE [None]
